FAERS Safety Report 13589483 (Version 1)
Quarter: 2017Q2

REPORT INFORMATION
  Report Type: Spontaneous
  Country: US (occurrence: US)
  Receive Date: 20170526
  Receipt Date: 20170526
  Transmission Date: 20170830
  Serious: Yes (Other)
  Sender: FDA-Public Use
  Company Number: None

PATIENT
  Age: 82 Year
  Sex: Male

DRUGS (1)
  1. REVLIMID [Suspect]
     Active Substance: LENALIDOMIDE
     Indication: MYELODYSPLASTIC SYNDROME
     Dosage: FREQUENCY DAILY X21D/28D
     Route: 048
     Dates: start: 20140430

REACTIONS (3)
  - Thrombocytopenia [None]
  - Leukopenia [None]
  - Rash [None]

NARRATIVE: CASE EVENT DATE: 20140520
